FAERS Safety Report 24014284 (Version 1)
Quarter: 2024Q2

REPORT INFORMATION
  Report Type: Spontaneous
  Country: US (occurrence: None)
  Receive Date: 20240625
  Receipt Date: 20240625
  Transmission Date: 20240716
  Serious: No
  Sender: FDA-Public Use
  Company Number: None

PATIENT
  Age: 33 Year
  Sex: Female
  Weight: 65.77 kg

DRUGS (1)
  1. COSENTYX [Suspect]
     Active Substance: SECUKINUMAB
     Indication: Hidradenitis
     Dosage: OTHER QUANTITY : 300MG (1 PEN) ;?FREQUENCY : AS DIRECTED;?
     Route: 058
     Dates: start: 202405

REACTIONS (1)
  - Gastrointestinal surgery [None]
